FAERS Safety Report 14075107 (Version 2)
Quarter: 2018Q1

REPORT INFORMATION
  Report Type: Report from Study
  Country: US (occurrence: US)
  Receive Date: 20171010
  Receipt Date: 20180321
  Transmission Date: 20180508
  Serious: Yes (Hospitalization)
  Sender: FDA-Public Use
  Company Number: US-ACTELION-A-US2016-133928

PATIENT
  Age: 78 Year
  Sex: Female
  Weight: 58.96 kg

DRUGS (5)
  1. AMOXICILLIN. [Suspect]
     Active Substance: AMOXICILLIN
     Indication: PRODUCT USED FOR UNKNOWN INDICATION
     Route: 048
  2. OPSUMIT [Suspect]
     Active Substance: MACITENTAN
     Indication: PULMONARY HYPERTENSION
     Dosage: 10 MG, QD
     Route: 048
  3. SYMBICORT [Suspect]
     Active Substance: BUDESONIDE\FORMOTEROL FUMARATE DIHYDRATE
     Indication: PRODUCT USED FOR UNKNOWN INDICATION
     Route: 048
  4. ADCIRCA [Concomitant]
     Active Substance: TADALAFIL
  5. COUMADIN [Concomitant]
     Active Substance: WARFARIN SODIUM

REACTIONS (12)
  - Cough [Unknown]
  - Memory impairment [Unknown]
  - Fatigue [Unknown]
  - Sinus disorder [Unknown]
  - Infection [Unknown]
  - Dyspnoea [Unknown]
  - Drug dose omission [Unknown]
  - Pyrexia [Unknown]
  - Epistaxis [Unknown]
  - Anaemia [Unknown]
  - Malaise [Unknown]
  - Bronchitis [Unknown]
